FAERS Safety Report 18928719 (Version 1)
Quarter: 2021Q1

REPORT INFORMATION
  Report Type: Spontaneous
  Country: IN (occurrence: IN)
  Receive Date: 20210223
  Receipt Date: 20210223
  Transmission Date: 20210420
  Serious: Yes (Death, Life-Threatening, Hospitalization, Other)
  Sender: FDA-Public Use
  Company Number: IN-STRIDES ARCOLAB LIMITED-2021SP002013

PATIENT
  Age: 11 Year
  Sex: Female
  Weight: 30 kg

DRUGS (21)
  1. RANITIDINE. [Concomitant]
     Active Substance: RANITIDINE
     Indication: HERPES ZOSTER MENINGOENCEPHALITIS
     Dosage: 75 MILLIGRAM, EVERY 12 HRS
     Route: 048
  2. RANITIDINE. [Concomitant]
     Active Substance: RANITIDINE
     Indication: HAEMORRHAGIC VARICELLA SYNDROME
     Dosage: 75 MILLIGRAM, EVERY 12 HRS
     Route: 048
  3. RANITIDINE. [Concomitant]
     Active Substance: RANITIDINE
     Dosage: 50 MILLIGRAM, BID
     Route: 042
  4. CEFOTAXIME [Concomitant]
     Active Substance: CEFOTAXIME SODIUM
     Indication: HERPES ZOSTER MENINGOENCEPHALITIS
     Dosage: 125 MILLIGRAM, QID
     Route: 042
  5. PREDNISOLONE. [Suspect]
     Active Substance: PREDNISOLONE
     Dosage: 50 MILLIGRAM,IN THREE DIVIDED DOSES
     Route: 048
  6. PETHIDINE [Concomitant]
     Active Substance: MEPERIDINE
     Indication: HAEMORRHAGIC VARICELLA SYNDROME
     Dosage: 15 MILLIGRAM, TID
     Route: 042
  7. PETHIDINE [Concomitant]
     Active Substance: MEPERIDINE
     Indication: HERPES ZOSTER MENINGOENCEPHALITIS
     Dosage: 15 MILLIGRAM SOS
     Route: 042
  8. GENTAMYCIN [GENTAMICIN] [Concomitant]
     Active Substance: GENTAMICIN
     Indication: HERPES ZOSTER MENINGOENCEPHALITIS
     Dosage: 75 MILLIGRAM, BID
     Route: 042
  9. PREDNISOLONE. [Suspect]
     Active Substance: PREDNISOLONE
     Dosage: 10 MILLIGRAM, EVERY 12 HRS
     Route: 048
  10. NAPROXEN. [Concomitant]
     Active Substance: NAPROXEN
     Indication: HAEMORRHAGIC VARICELLA SYNDROME
     Dosage: 125 MILLIGRAM, EVERY 12 HRS
     Route: 048
  11. GENTAMYCIN [GENTAMICIN] [Concomitant]
     Active Substance: GENTAMICIN
     Indication: HAEMORRHAGIC VARICELLA SYNDROME
     Dosage: 75 MILLIGRAM, BID
     Route: 042
  12. PREDNISOLONE. [Suspect]
     Active Substance: PREDNISOLONE
     Indication: PRODUCT USED FOR UNKNOWN INDICATION
     Dosage: 60 MILLIGRAM, THREE DIVIDED DOSES
     Route: 048
  13. PREDNISOLONE. [Suspect]
     Active Substance: PREDNISOLONE
     Dosage: 20 MILLIGRAM, EVERY 12 HRS
     Route: 048
  14. NAPROXEN. [Concomitant]
     Active Substance: NAPROXEN
     Indication: HERPES ZOSTER MENINGOENCEPHALITIS
     Dosage: 125 MILLIGRAM, EVERY 12 HRS
     Route: 048
  15. IBUPROFEN. [Concomitant]
     Active Substance: IBUPROFEN
     Indication: PRODUCT USED FOR UNKNOWN INDICATION
     Dosage: 200 MILLIGRAM
     Route: 048
  16. CEFOTAXIME [Concomitant]
     Active Substance: CEFOTAXIME SODIUM
     Indication: HAEMORRHAGIC VARICELLA SYNDROME
     Dosage: 2 GRAM, TID
     Route: 042
  17. CLOXACILLIN [Concomitant]
     Active Substance: CLOXACILLIN
     Dosage: 750 MILLIGRAM, QID
     Route: 048
  18. NAPROXEN. [Concomitant]
     Active Substance: NAPROXEN
     Dosage: 125 MILLIGRAM, BID
     Route: 048
  19. ACETAMINOPHEN. [Concomitant]
     Active Substance: ACETAMINOPHEN
     Indication: PRODUCT USED FOR UNKNOWN INDICATION
     Dosage: 500 MILLIGRAM, QID
     Route: 065
  20. AMIKACIN. [Concomitant]
     Active Substance: AMIKACIN
     Indication: PRODUCT USED FOR UNKNOWN INDICATION
     Dosage: 220 MILLIGRAM, BID
     Route: 042
  21. CLOXACILLIN [Concomitant]
     Active Substance: CLOXACILLIN
     Indication: PRODUCT USED FOR UNKNOWN INDICATION
     Dosage: 1 GRAM, QID
     Route: 042

REACTIONS (5)
  - Sepsis [Fatal]
  - Hypoalbuminaemia [Fatal]
  - Herpes zoster meningoencephalitis [Fatal]
  - Thrombocytopenia [Fatal]
  - Haemorrhagic varicella syndrome [Fatal]
